FAERS Safety Report 8804479 (Version 5)
Quarter: 2014Q1

REPORT INFORMATION
  Report Type: Spontaneous
  Country: FR (occurrence: FR)
  Receive Date: 20120924
  Receipt Date: 20140217
  Transmission Date: 20141002
  Serious: Yes (Other)
  Sender: FDA-Public Use
  Company Number: FR-GILEAD-2012-0057585

PATIENT
  Sex: Male

DRUGS (5)
  1. TRUVADA [Suspect]
     Indication: HIV INFECTION
     Dosage: UNK
     Route: 048
     Dates: start: 2010
  2. DARUNAVIR [Suspect]
     Indication: HIV INFECTION
     Dosage: 600 MG, BID
  3. DARUNAVIR [Suspect]
     Dosage: 400 MG, BID
     Route: 048
  4. RITONAVIR [Suspect]
     Indication: HIV INFECTION
     Dosage: 100 MG, QD
     Route: 048
  5. BILTRICIDE [Concomitant]
     Indication: SCHISTOSOMIASIS
     Dosage: 1 DF, ONCE
     Dates: start: 201203, end: 201203

REACTIONS (3)
  - Liver disorder [Recovering/Resolving]
  - Hepatitis B DNA assay positive [Unknown]
  - Drug ineffective [Unknown]
